FAERS Safety Report 6405735-7 (Version None)
Quarter: 2009Q4

REPORT INFORMATION
  Report Type: 
  Country: None (occurrence: None)
  Receive Date: 20091016
  Receipt Date: 20091016
  Transmission Date: 20100525
  Serious: Yes (Other)
  Sender: FDA-Public Use
  Company Number: None

PATIENT
  Sex: Female
  Weight: 77.1115 kg

DRUGS (1)
  1. ABILIFY [Suspect]
     Dosage: UNKNOWN
     Dates: start: 20090501

REACTIONS (1)
  - GRAND MAL CONVULSION [None]
